FAERS Safety Report 4809245-X (Version None)
Quarter: 2005Q4

REPORT INFORMATION
  Report Type: 
  Country: None (occurrence: None)
  Receive Date: 20051021
  Receipt Date: 20031105
  Transmission Date: 20060501
  Serious: Yes (Other)
  Sender: FDA-Public Use
  Company Number: GBS031113994

PATIENT
  Sex: Female

DRUGS (1)
  1. OLANZAPINE [Suspect]
     Dates: start: 20030701

REACTIONS (4)
  - LEUKAEMIA [None]
  - LYMPHOCYTE COUNT DECREASED [None]
  - NEUTROPHIL COUNT DECREASED [None]
  - WHITE BLOOD CELL COUNT DECREASED [None]
